FAERS Safety Report 4633713-7 (Version None)
Quarter: 2005Q1

REPORT INFORMATION
  Report Type: 
  Country: None (occurrence: None)
  Receive Date: 20050325
  Receipt Date: 20041223
  Transmission Date: 20050727
  Serious: No
  Sender: FDA-Public Use
  Company Number: USA041286881

PATIENT
  Age: 77 Year
  Sex: Female
  Weight: 55 kg

DRUGS (6)
  1. FORTEO [Suspect]
     Indication: OSTEOPOROSIS
     Dosage: 20 UG/1 DAY
     Dates: start: 20040901, end: 20041218
  2. LEVOTHYROXINE SODIUM [Concomitant]
  3. NORVASC [Concomitant]
  4. ALBUTEROL [Concomitant]
  5. IPATROPIUM BROMIDE [Concomitant]
  6. BUDESONIDE [Concomitant]

REACTIONS (5)
  - COUGH [None]
  - DIZZINESS [None]
  - DYSPNOEA [None]
  - FEELING ABNORMAL [None]
  - PRURITUS [None]
